FAERS Safety Report 7027054-0 (Version None)
Quarter: 2010Q4

REPORT INFORMATION
  Report Type: 
  Country: None (occurrence: None)
  Receive Date: 20101004
  Receipt Date: 20100928
  Transmission Date: 20110411
  Serious: Yes (Hospitalization)
  Sender: FDA-Public Use
  Company Number: JP-SHIRE-SPV1-2010-01686

PATIENT
  Sex: Female

DRUGS (9)
  1. LANTHANUM CARBONATE [Suspect]
     Indication: HYPERPHOSPHATAEMIA
     Route: 048
     Dates: start: 20090511, end: 20091130
  2. CALCIUM CARBONATE [Concomitant]
     Indication: HYPERPHOSPHATAEMIA
     Dosage: 1.5G DAILY
     Route: 048
     Dates: end: 20091130
  3. ONEALFA [Concomitant]
     Dosage: .25 UG, UNKNOWN
     Route: 048
     Dates: end: 20091130
  4. GASTER                             /00661201/ [Concomitant]
     Dosage: 20 MG, UNKNOWN
     Route: 048
  5. HERBESSER R [Concomitant]
     Dosage: 200 MG, UNK
     Route: 048
  6. ADALAT [Concomitant]
     Dosage: 20MG DAILY
     Route: 048
  7. METHYCOBAL [Concomitant]
     Dosage: 1500 UG, UNKNOWN
     Route: 048
  8. ZESULAN [Concomitant]
     Dosage: 6 MG, UNKNOWN
     Route: 048
  9. CLARITIN                           /00917501/ [Concomitant]
     Dosage: 10 MG, UNKNOWN
     Route: 048

REACTIONS (1)
  - INTESTINAL OBSTRUCTION [None]
